FAERS Safety Report 23177280 (Version 1)
Quarter: 2023Q4

REPORT INFORMATION
  Report Type: Spontaneous
  Country: FR (occurrence: FR)
  Receive Date: 20231113
  Receipt Date: 20231113
  Transmission Date: 20240109
  Serious: Yes (Other)
  Sender: FDA-Public Use
  Company Number: None

PATIENT
  Age: 86 Year
  Sex: Male

DRUGS (2)
  1. ALLOPURINOL [Suspect]
     Active Substance: ALLOPURINOL
     Indication: Hyperuricaemia
     Dates: end: 20230921
  2. CLINDAMYCIN HYDROCHLORIDE [Suspect]
     Active Substance: CLINDAMYCIN HYDROCHLORIDE
     Indication: Staphylococcal bacteraemia
     Dosage: 1800 MILLIGRAM DAILY; 600 MG 3 TIMES A DAY
     Dates: start: 20230829, end: 20230921

REACTIONS (1)
  - Cutaneous vasculitis [Recovered/Resolved]

NARRATIVE: CASE EVENT DATE: 20230920
